FAERS Safety Report 6432865-6 (Version None)
Quarter: 2009Q4

REPORT INFORMATION
  Report Type: 
  Country: None (occurrence: None)
  Receive Date: 20091109
  Receipt Date: 20091031
  Transmission Date: 20100525
  Serious: Yes (Other)
  Sender: FDA-Public Use
  Company Number: B0602351A

PATIENT
  Age: 41 Year
  Sex: Female

DRUGS (1)
  1. TYKERB [Suspect]
     Route: 065
     Dates: start: 20090406, end: 20091030

REACTIONS (2)
  - EJECTION FRACTION DECREASED [None]
  - TACHYCARDIA [None]
